FAERS Safety Report 23724700 (Version 2)
Quarter: 2024Q2

REPORT INFORMATION
  Report Type: Report from Study
  Country: US (occurrence: US)
  Receive Date: 20240409
  Receipt Date: 20240507
  Transmission Date: 20240716
  Serious: Yes (Hospitalization)
  Sender: FDA-Public Use
  Company Number: US-ABBVIE-5709625

PATIENT
  Age: 71 Year
  Sex: Female
  Weight: 67.131 kg

DRUGS (7)
  1. SKYRIZI [Suspect]
     Active Substance: RISANKIZUMAB-RZAA
     Indication: Psoriasis
     Dosage: FORM STRENGTH: 150 MILLIGRAM
     Route: 058
     Dates: start: 20210608
  2. MIRAPEX [Concomitant]
     Active Substance: PRAMIPEXOLE DIHYDROCHLORIDE
     Indication: Restless legs syndrome
  3. TIZANIDINE [Concomitant]
     Active Substance: TIZANIDINE
     Indication: Muscle relaxant therapy
  4. SINGULAIR [Concomitant]
     Active Substance: MONTELUKAST SODIUM
     Indication: Hypersensitivity
  5. HYDROCODONE [Concomitant]
     Active Substance: HYDROCODONE
     Indication: Back pain
  6. EFFEXOR [Concomitant]
     Active Substance: VENLAFAXINE HYDROCHLORIDE
     Indication: Depression
  7. ESTRADIOL [Concomitant]
     Active Substance: ESTRADIOL
     Indication: Hormone therapy

REACTIONS (10)
  - Back injury [Recovered/Resolved]
  - Rotator cuff syndrome [Recovered/Resolved]
  - Cerebral haemorrhage [Recovered/Resolved]
  - Malaise [Not Recovered/Not Resolved]
  - Balance disorder [Unknown]
  - Fall [Recovered/Resolved]
  - Dust allergy [Not Recovered/Not Resolved]
  - Allergic cough [Not Recovered/Not Resolved]
  - Rhinorrhoea [Not Recovered/Not Resolved]
  - Head injury [Recovered/Resolved]

NARRATIVE: CASE EVENT DATE: 20230525
